FAERS Safety Report 6683279-5 (Version None)
Quarter: 2010Q2

REPORT INFORMATION
  Report Type: 
  Country: None (occurrence: None)
  Receive Date: 20100415
  Receipt Date: 20100409
  Transmission Date: 20101027
  Serious: Yes (Hospitalization)
  Sender: FDA-Public Use
  Company Number: JP-SANOFI-AVENTIS-2010SA006228

PATIENT
  Age: 29 Year
  Sex: Female
  Weight: 69.4 kg

DRUGS (2)
  1. APIDRA [Suspect]
     Dosage: THE DOSE OF ONCE' 16-20 UNITS; TID DOSE:16 UNIT(S)
     Route: 058
     Dates: start: 20090814
  2. LANTUS [Suspect]
     Dosage: DOSE:25 UNIT(S)
     Route: 058
     Dates: start: 20040820

REACTIONS (1)
  - MYELITIS [None]
